FAERS Safety Report 8961010 (Version 1)
Quarter: 2012Q4

REPORT INFORMATION
  Report Type: Report from Study
  Country: IL (occurrence: IL)
  Receive Date: 20121212
  Receipt Date: 20121212
  Transmission Date: 20130627
  Serious: Yes (Hospitalization)
  Sender: FDA-Public Use
  Company Number: IL-TEVA-374809ISR

PATIENT
  Age: 40 Year
  Sex: Female
  Weight: 93 kg

DRUGS (5)
  1. CISPLATINUM [Suspect]
     Indication: NON-SMALL CELL LUNG CANCER
     Route: 042
     Dates: start: 20071107
  2. BEVACIZUMAB [Suspect]
     Indication: NON-SMALL CELL LUNG CANCER
     Route: 042
     Dates: start: 20071107, end: 20071216
  3. GEMZAR [Suspect]
     Indication: NON-SMALL CELL LUNG CANCER
     Route: 042
     Dates: start: 20071107
  4. OPTALGIN [Concomitant]
     Dates: start: 20071203, end: 20071206
  5. BONDORMIN [Concomitant]
     Dates: start: 20071203, end: 20071206

REACTIONS (1)
  - Pulmonary embolism [Recovered/Resolved]
